FAERS Safety Report 14458064 (Version 1)
Quarter: 2018Q1

REPORT INFORMATION
  Report Type: Spontaneous
  Country: US (occurrence: US)
  Receive Date: 20180129
  Receipt Date: 20180129
  Transmission Date: 20180509
  Serious: Yes (Hospitalization)
  Sender: FDA-Public Use
  Company Number: None

PATIENT
  Age: 61 Year
  Sex: Male
  Weight: 97.07 kg

DRUGS (1)
  1. LIRAGLUTIDE [Suspect]
     Active Substance: LIRAGLUTIDE
     Indication: DIABETES MELLITUS
     Route: 058
     Dates: start: 20170424, end: 20171103

REACTIONS (7)
  - Pancreatitis [None]
  - Nausea [None]
  - Blood creatine increased [None]
  - Hepatic enzyme increased [None]
  - Abdominal pain [None]
  - Blood urea increased [None]
  - Vomiting [None]

NARRATIVE: CASE EVENT DATE: 20171103
